FAERS Safety Report 15387972 (Version 1)
Quarter: 2018Q3

REPORT INFORMATION
  Report Type: Report from Study
  Country: None (occurrence: ES)
  Receive Date: 20180915
  Receipt Date: 20180915
  Transmission Date: 20181010
  Serious: Yes (Other)
  Sender: FDA-Public Use
  Company Number: ES-ABBVIE-18S-144-2480209-00

PATIENT
  Age: 85 Year
  Sex: Female

DRUGS (1)
  1. DUODOPA [Suspect]
     Active Substance: CARBIDOPA\LEVODOPA
     Indication: PARKINSON^S DISEASE
     Route: 050
     Dates: start: 20131114

REACTIONS (4)
  - Dysstasia [Unknown]
  - Unresponsive to stimuli [Not Recovered/Not Resolved]
  - Staring [Not Recovered/Not Resolved]
  - Freezing phenomenon [Not Recovered/Not Resolved]

NARRATIVE: CASE EVENT DATE: 20180910
